FAERS Safety Report 23249751 (Version 1)
Quarter: 2023Q4

REPORT INFORMATION
  Report Type: Spontaneous
  Country: CA (occurrence: CA)
  Receive Date: 20231201
  Receipt Date: 20231201
  Transmission Date: 20240110
  Serious: Yes (Other)
  Sender: FDA-Public Use
  Company Number: None

PATIENT
  Age: 26 Year
  Sex: Male

DRUGS (7)
  1. ESCITALOPRAM [Suspect]
     Active Substance: ESCITALOPRAM OXALATE
     Indication: Depression
     Dosage: DAILY DOSE: 1.0 DF, FORM: UNKNOWN
     Route: 048
     Dates: start: 20200507
  2. BUPROPION [Concomitant]
     Active Substance: BUPROPION
     Indication: Depression
     Dosage: XL
     Route: 065
  3. BUPROPION [Concomitant]
     Active Substance: BUPROPION
     Indication: Depression
     Route: 065
  4. BUPROPION [Concomitant]
     Active Substance: BUPROPION
     Indication: Depression
     Dosage: XL
     Route: 065
     Dates: start: 20200402
  5. LORAZEPAM [Concomitant]
     Active Substance: LORAZEPAM
     Indication: Panic attack
     Route: 048
     Dates: start: 20200507
  6. QUETIAPINE [Concomitant]
     Active Substance: QUETIAPINE
     Indication: Panic attack
     Dosage: IF NEEDED
     Route: 048
     Dates: start: 2019
  7. QUETIAPINE [Concomitant]
     Active Substance: QUETIAPINE
     Indication: Panic attack
     Dosage: BEFORE BED
     Route: 048
     Dates: start: 20200125

REACTIONS (1)
  - Type I hypersensitivity [Recovered/Resolved]
